FAERS Safety Report 17201607 (Version 3)
Quarter: 2020Q1

REPORT INFORMATION
  Report Type: Report from Study
  Country: IL (occurrence: IL)
  Receive Date: 20191226
  Receipt Date: 20200131
  Transmission Date: 20200409
  Serious: Yes (Other)
  Sender: FDA-Public Use
  Company Number: IL-GLAXOSMITHKLINE-IL2019TSO233869

PATIENT
  Age: 48 Year
  Sex: Female
  Weight: 59.9 kg

DRUGS (21)
  1. SODIUM CHLORIDE. [Concomitant]
     Active Substance: SODIUM CHLORIDE
     Indication: URINARY TRACT INFECTION
     Dosage: 1000 ML, SINGLE
     Route: 042
     Dates: start: 20191127, end: 20191127
  2. PACLITAXEL. [Suspect]
     Active Substance: PACLITAXEL
     Dosage: 282 MG, SINGLE
     Route: 042
     Dates: start: 20190910, end: 20190910
  3. PRAMIN [Concomitant]
     Indication: NAUSEA
     Dosage: 10 MG, PRN
     Route: 048
     Dates: start: 20191127, end: 20191129
  4. SETRON [Concomitant]
     Indication: URINARY TRACT INFECTION
     Dosage: 1 MG, QD
     Route: 048
     Dates: start: 20191127, end: 20191128
  5. DOSTARLIMAB [Suspect]
     Active Substance: DOSTARLIMAB
     Indication: OVARIAN CANCER
     Dosage: 500 MG, SINGLE
     Route: 042
     Dates: start: 20190709, end: 20190709
  6. AMOXICILLIN. [Concomitant]
     Active Substance: AMOXICILLIN
     Dosage: 500 MG, TID
     Route: 048
     Dates: start: 20191129, end: 20191203
  7. OXYCODON [Concomitant]
     Active Substance: OXYCODONE
     Dosage: 10 MG, SINGLE
     Route: 048
     Dates: start: 20191129, end: 20191129
  8. NIRAPARIB [Suspect]
     Active Substance: NIRAPARIB
     Indication: OVARIAN CANCER
     Dosage: 200 MG, QD
     Route: 048
     Dates: start: 20191024, end: 20191221
  9. CARBOPLATIN. [Suspect]
     Active Substance: CARBOPLATIN
     Indication: OVARIAN CANCER
     Dosage: 5 AUC
     Route: 042
     Dates: start: 20190618, end: 20190618
  10. PACLITAXEL. [Suspect]
     Active Substance: PACLITAXEL
     Indication: OVARIAN CANCER
     Dosage: 282 MG, SINGLE
     Route: 042
     Dates: start: 20190618, end: 20190618
  11. DOSTARLIMAB [Suspect]
     Active Substance: DOSTARLIMAB
     Dosage: 1000 MG, SINGLE
     Route: 042
     Dates: start: 20191205, end: 20191205
  12. BEVACIZUMAB. [Suspect]
     Active Substance: BEVACIZUMAB
     Indication: OVARIAN CANCER
     Dosage: 7.5 MG/KG, SINGLE
     Route: 042
     Dates: start: 20190618, end: 20190618
  13. OXYCODON [Concomitant]
     Active Substance: OXYCODONE
     Dosage: 10 MG, BID
     Route: 048
     Dates: start: 20191128, end: 20191128
  14. NIRAPARIB [Suspect]
     Active Substance: NIRAPARIB
     Dosage: 100 MG, QD
     Route: 048
     Dates: start: 20200114
  15. CARBOPLATIN. [Suspect]
     Active Substance: CARBOPLATIN
     Dosage: 520 AUC
     Route: 042
     Dates: start: 20190910, end: 20190910
  16. CEFTRIAXONE. [Concomitant]
     Active Substance: CEFTRIAXONE
     Dosage: 1 G, SINGLE
     Route: 042
     Dates: start: 20191128, end: 20191128
  17. CONTROLOC [Concomitant]
     Active Substance: PANTOPRAZOLE SODIUM
     Indication: DYSPEPSIA
     Dosage: 40 MG, SINGLE
     Route: 042
     Dates: start: 20191127, end: 20191127
  18. CEFTRIAXONE. [Concomitant]
     Active Substance: CEFTRIAXONE
     Indication: URINARY TRACT INFECTION
     Dosage: 1 G, BID
     Route: 042
     Dates: start: 20191127, end: 20191127
  19. BEVACIZUMAB. [Suspect]
     Active Substance: BEVACIZUMAB
     Dosage: 440 MG/KG, SINGLE
     Route: 042
     Dates: start: 20191205, end: 20191205
  20. AMOXICILLIN. [Concomitant]
     Active Substance: AMOXICILLIN
     Indication: URINARY TRACT INFECTION
     Dosage: 500 MG, BID
     Route: 048
     Dates: start: 20191128, end: 20191128
  21. OXYCODON [Concomitant]
     Active Substance: OXYCODONE
     Indication: URINARY TRACT INFECTION
     Dosage: 4 MG, SINGLE
     Route: 048
     Dates: start: 20191127, end: 20191127

REACTIONS (1)
  - Transaminases increased [Recovered/Resolved with Sequelae]

NARRATIVE: CASE EVENT DATE: 20191222
